FAERS Safety Report 8499890-5 (Version None)
Quarter: 2012Q3

REPORT INFORMATION
  Report Type: 
  Country: None (occurrence: None)
  Receive Date: 20120710
  Receipt Date: 20120703
  Transmission Date: 20120928
  Serious: Yes (Hospitalization, Other)
  Sender: FDA-Public Use
  Company Number: PHHY2012DE053636

PATIENT
  Sex: Female

DRUGS (4)
  1. ZOLEDRONOC ACID [Suspect]
     Indication: OSTEOPOROSIS
     Dosage: 5 MG, ONCE YEARLY
     Route: 042
     Dates: start: 20090303
  2. ZOLEDRONOC ACID [Suspect]
     Dosage: 5 MG SOLUTION FOR INFUSION ONCE YEARLY
     Route: 042
     Dates: start: 20100302
  3. ZOLEDRONOC ACID [Suspect]
     Dosage: 5 MG SOLUTION FOR INFUSION ONCE YEARLY
     Route: 042
     Dates: start: 20120525
  4. ZOLEDRONOC ACID [Suspect]
     Dosage: 5 MG SOLUTION FOR INFUSION ONCE YEARLY
     Route: 042
     Dates: start: 20110324

REACTIONS (11)
  - PAIN IN JAW [None]
  - TOOTH DISORDER [None]
  - CHILLS [None]
  - PAIN [None]
  - MUSCULOSKELETAL PAIN [None]
  - TOOTH LOSS [None]
  - ATROPHY [None]
  - PAIN IN EXTREMITY [None]
  - BONE PAIN [None]
  - JAW DISORDER [None]
  - BONE DISORDER [None]
